FAERS Safety Report 19705472 (Version 1)
Quarter: 2021Q3

REPORT INFORMATION
  Report Type: Spontaneous
  Country: GB (occurrence: GB)
  Receive Date: 20210816
  Receipt Date: 20210816
  Transmission Date: 20211014
  Serious: Yes (Other)
  Sender: FDA-Public Use
  Company Number: GB-GLAXOSMITHKLINE-GBCH2021054188

PATIENT
  Age: 2 Year
  Sex: Female
  Weight: 11.6 kg

DRUGS (2)
  1. IBUPROFEN. [Suspect]
     Active Substance: IBUPROFEN
     Indication: HEAT STROKE
     Dosage: 5.5ML AND A FURTHER 2.5ML SIX HOURS LATER; ;
     Route: 048
     Dates: start: 20210726, end: 20210726
  2. CALPOL [Concomitant]
     Active Substance: ACETAMINOPHEN
     Indication: HEAT STROKE
     Dosage: UNKNOWN

REACTIONS (13)
  - Malaise [Recovering/Resolving]
  - Exophthalmos [Recovering/Resolving]
  - Sleep talking [Recovering/Resolving]
  - Headache [Recovering/Resolving]
  - Ear pain [Recovering/Resolving]
  - Panic attack [Recovering/Resolving]
  - Abdominal pain [Recovering/Resolving]
  - Hallucination, visual [Recovering/Resolving]
  - Decreased appetite [Recovering/Resolving]
  - Screaming [Recovering/Resolving]
  - Confusional state [Recovering/Resolving]
  - Hallucination [Recovering/Resolving]
  - Restlessness [Recovering/Resolving]

NARRATIVE: CASE EVENT DATE: 20210726
